FAERS Safety Report 18712516 (Version 1)
Quarter: 2021Q1

REPORT INFORMATION
  Report Type: Spontaneous
  Country: IT (occurrence: IT)
  Receive Date: 20210107
  Receipt Date: 20210107
  Transmission Date: 20210419
  Serious: Yes (Other)
  Sender: FDA-Public Use
  Company Number: IT-PFIZER INC-2021004127

PATIENT
  Age: 62 Year
  Sex: Female

DRUGS (2)
  1. MEDROL [Suspect]
     Active Substance: METHYLPREDNISOLONE
     Indication: GIANT CELL ARTERITIS
     Dosage: 2 DF, 1X/DAY
     Route: 048
     Dates: start: 20190922
  2. PANTOPRAZOLE [Concomitant]
     Active Substance: PANTOPRAZOLE
     Dosage: UNK

REACTIONS (2)
  - Steroid diabetes [Unknown]
  - Off label use [Unknown]

NARRATIVE: CASE EVENT DATE: 20190922
